FAERS Safety Report 7145964-0 (Version None)
Quarter: 2010Q4

REPORT INFORMATION
  Report Type: 
  Country: None (occurrence: None)
  Receive Date: 20101208
  Receipt Date: 20101205
  Transmission Date: 20110411
  Serious: Yes (Death, Hospitalization)
  Sender: FDA-Public Use
  Company Number: GB-SANOFI-AVENTIS-2010SA073543

PATIENT
  Sex: Male

DRUGS (2)
  1. TAXOTERE [Suspect]
     Indication: PROSTATE CANCER
     Route: 042
     Dates: start: 20090813, end: 20090813
  2. TAXOTERE [Suspect]
     Route: 042
     Dates: start: 20091021, end: 20091021

REACTIONS (2)
  - DEATH [None]
  - FATIGUE [None]
